FAERS Safety Report 9916934 (Version 1)
Quarter: 2014Q1

REPORT INFORMATION
  Report Type: Spontaneous
  Country: US (occurrence: US)
  Receive Date: 20140221
  Receipt Date: 20140221
  Transmission Date: 20141002
  Serious: No
  Sender: FDA-Public Use
  Company Number: US-009507513-1402USA010601

PATIENT
  Sex: Female

DRUGS (3)
  1. OXYTROL FOR WOMEN [Suspect]
     Indication: URGE INCONTINENCE
     Dosage: UNK, UNKNOWN
     Route: 062
  2. OXYTROL FOR WOMEN [Suspect]
     Indication: STRESS URINARY INCONTINENCE
  3. OXYTROL FOR WOMEN [Suspect]
     Indication: NOCTURIA

REACTIONS (2)
  - Drug ineffective for unapproved indication [Unknown]
  - Drug effect decreased [Unknown]
